FAERS Safety Report 13570855 (Version 1)
Quarter: 2017Q2

REPORT INFORMATION
  Report Type: Spontaneous
  Country: US (occurrence: US)
  Receive Date: 20170522
  Receipt Date: 20170522
  Transmission Date: 20170830
  Serious: Yes (Other)
  Sender: FDA-Public Use
  Company Number: None

PATIENT
  Age: 64 Year
  Sex: Male
  Weight: 88.9 kg

DRUGS (15)
  1. CEFEPIME [Suspect]
     Active Substance: CEFEPIME HYDROCHLORIDE
     Indication: DECUBITUS ULCER
     Dosage: 1 G ?INTRAVENOUS (NOT OTHERWISE SPECIFIED)
     Route: 041
     Dates: start: 20170513, end: 20170522
  2. DAPTOMYCIN. [Concomitant]
     Active Substance: DAPTOMYCIN
  3. ATORVASTATIN [Concomitant]
     Active Substance: ATORVASTATIN
  4. FUROSEMIDE. [Concomitant]
     Active Substance: FUROSEMIDE
  5. LISINOPRIL. [Concomitant]
     Active Substance: LISINOPRIL
  6. ASA [Concomitant]
     Active Substance: ASPIRIN
  7. INSULIN [Concomitant]
     Active Substance: INSULIN NOS
  8. CEFEPIME [Suspect]
     Active Substance: CEFEPIME HYDROCHLORIDE
     Indication: IMPAIRED HEALING
     Dosage: 1 G ?INTRAVENOUS (NOT OTHERWISE SPECIFIED)
     Route: 041
     Dates: start: 20170513, end: 20170522
  9. CALICUM ACETATE [Concomitant]
  10. CLOPIDOGREL [Concomitant]
     Active Substance: CLOPIDOGREL BISULFATE
  11. CALCITRIOL. [Concomitant]
     Active Substance: CALCITRIOL
  12. EPOETIN [Concomitant]
     Active Substance: ERYTHROPOIETIN
  13. HEPARIN [Concomitant]
     Active Substance: HEPARIN SODIUM
  14. IRON SUCROSE [Concomitant]
     Active Substance: IRON SUCROSE
  15. FLUCONAZOLE. [Concomitant]
     Active Substance: FLUCONAZOLE

REACTIONS (1)
  - Dysarthria [None]

NARRATIVE: CASE EVENT DATE: 20170520
